FAERS Safety Report 16341224 (Version 2)
Quarter: 2019Q2

REPORT INFORMATION
  Report Type: Report from Study
  Country: None (occurrence: US)
  Receive Date: 20190522
  Receipt Date: 20190625
  Transmission Date: 20190711
  Serious: Yes (Other)
  Sender: FDA-Public Use
  Company Number: US-ABBVIE-19K-163-2786258-00

PATIENT
  Age: 50 Year
  Sex: Female
  Weight: 74.91 kg

DRUGS (4)
  1. MAVYRET [Suspect]
     Active Substance: GLECAPREVIR\PIBRENTASVIR
     Indication: CHRONIC HEPATITIS C
     Dosage: WITH FOOD
     Route: 048
     Dates: start: 20181228, end: 20190221
  2. VITAMIN D [Concomitant]
     Active Substance: VITAMIN D NOS
     Indication: PRODUCT USED FOR UNKNOWN INDICATION
  3. GABAPENTIN. [Suspect]
     Active Substance: GABAPENTIN
     Indication: NEUROPATHY PERIPHERAL
     Route: 065
  4. TYLENOL WITH CODEINE [Concomitant]
     Active Substance: ACETAMINOPHEN\CODEINE PHOSPHATE
     Indication: NECK PAIN

REACTIONS (8)
  - Neuropathy peripheral [Not Recovered/Not Resolved]
  - Metastatic squamous cell carcinoma [Recovering/Resolving]
  - Fatigue [Unknown]
  - Emotional disorder [Unknown]
  - Feeling abnormal [Unknown]
  - Adhesion [Not Recovered/Not Resolved]
  - Lung neoplasm malignant [Recovering/Resolving]
  - Joint range of motion decreased [Unknown]

NARRATIVE: CASE EVENT DATE: 2019
